FAERS Safety Report 7394781-5 (Version None)
Quarter: 2011Q2

REPORT INFORMATION
  Report Type: 
  Country: None (occurrence: None)
  Receive Date: 20110405
  Receipt Date: 20110401
  Transmission Date: 20111010
  Serious: Yes (Hospitalization)
  Sender: FDA-Public Use
  Company Number: US-B.I. PHARMACEUTICALS,INC./RIDGEFIELD-2011-BP-09832BP

PATIENT
  Sex: Female

DRUGS (6)
  1. PRILOSEC [Concomitant]
     Indication: GASTROOESOPHAGEAL REFLUX DISEASE
     Route: 048
  2. PLAVIX [Concomitant]
     Indication: VASCULAR GRAFT
     Route: 048
     Dates: start: 20010101
  3. LIPITOR [Concomitant]
     Indication: HYPERCHOLESTEROLAEMIA
     Route: 048
     Dates: start: 20000101
  4. DOPAMAX [Concomitant]
     Indication: TREMOR
     Route: 048
  5. ASPIRIN [Concomitant]
     Indication: ATRIAL FLUTTER
     Dosage: 325 MG
     Route: 048
     Dates: start: 20110329
  6. PRADAXA [Suspect]
     Indication: ATRIAL FLUTTER
     Dosage: 300 MG
     Route: 048
     Dates: start: 20110331, end: 20110401

REACTIONS (2)
  - DYSPNOEA [None]
  - HYPERTENSION [None]
